FAERS Safety Report 8552591-7 (Version None)
Quarter: 2012Q3

REPORT INFORMATION
  Report Type: 
  Country: None (occurrence: None)
  Receive Date: 20120731
  Receipt Date: 20120717
  Transmission Date: 20120928
  Serious: Yes (Other)
  Sender: FDA-Public Use
  Company Number: BA-MYLANLABS-2012S1014724

PATIENT
  Age: 56 Year
  Sex: Female

DRUGS (4)
  1. CLOZAPINE [Suspect]
     Indication: SCHIZOPHRENIA, PARANOID TYPE
     Dosage: 400MG DAILY
     Route: 065
  2. HALOPERIDOL [Suspect]
     Indication: SCHIZOPHRENIA, PARANOID TYPE
     Dosage: 30MG DAILY
     Route: 065
  3. HALOPERIDOL DECANOATE [Suspect]
     Indication: SCHIZOPHRENIA, PARANOID TYPE
     Route: 065
  4. CHLORPROMAZINE HCL [Suspect]
     Indication: SCHIZOPHRENIA, PARANOID TYPE
     Dosage: 50MG DAILY
     Route: 065

REACTIONS (1)
  - PULMONARY EMBOLISM [None]
